FAERS Safety Report 16356345 (Version 1)
Quarter: 2019Q2

REPORT INFORMATION
  Report Type: Spontaneous
  Country: US (occurrence: US)
  Receive Date: 20190527
  Receipt Date: 20190527
  Transmission Date: 20190711
  Serious: Yes (Disabling, Other)
  Sender: FDA-Public Use
  Company Number: US-AMGEN-USASP2019080485

PATIENT
  Age: 62 Year
  Sex: Female

DRUGS (1)
  1. PROLIA [Suspect]
     Active Substance: DENOSUMAB
     Indication: OSTEOPOROSIS POSTMENOPAUSAL
     Dosage: 60 MILLIGRAM, Q6MO
     Route: 065
     Dates: start: 20190319

REACTIONS (8)
  - Cerebrovascular accident [Recovering/Resolving]
  - Joint noise [Recovering/Resolving]
  - Myalgia [Recovering/Resolving]
  - Transient ischaemic attack [Recovering/Resolving]
  - Salivary gland neoplasm [Recovering/Resolving]
  - Migraine [Recovering/Resolving]
  - Panic attack [Recovering/Resolving]
  - Alopecia [Recovering/Resolving]

NARRATIVE: CASE EVENT DATE: 2019
